FAERS Safety Report 21363965 (Version 1)
Quarter: 2022Q3

REPORT INFORMATION
  Report Type: Spontaneous
  Country: PL (occurrence: PL)
  Receive Date: 20220922
  Receipt Date: 20220922
  Transmission Date: 20221027
  Serious: Yes (Death, Other)
  Sender: FDA-Public Use
  Company Number: PL-JNJFOC-20220938240

PATIENT

DRUGS (1)
  1. REMICADE [Suspect]
     Active Substance: INFLIXIMAB
     Indication: Psoriasis
     Route: 041

REACTIONS (6)
  - Gastrointestinal haemorrhage [Fatal]
  - Sepsis [Unknown]
  - Anaphylactic reaction [Unknown]
  - Urinary tract infection [Unknown]
  - Drug ineffective [Unknown]
  - Therapy non-responder [Unknown]
